FAERS Safety Report 11473555 (Version 1)
Quarter: 2015Q3

REPORT INFORMATION
  Report Type: Spontaneous
  Country: US (occurrence: None)
  Receive Date: 20150902
  Receipt Date: 20150902
  Transmission Date: 20151125
  Serious: Yes (Hospitalization)
  Sender: FDA-Public Use
  Company Number: 1000076864

PATIENT
  Sex: Male

DRUGS (2)
  1. CITALOPRAM (CITALOPRAM HYDROCHLORIDE) [Suspect]
     Active Substance: CITALOPRAM HYDROCHLORIDE
  2. XYREM [Suspect]
     Active Substance: SODIUM OXYBATE

REACTIONS (1)
  - Depression [None]
